FAERS Safety Report 8784764 (Version 1)
Quarter: 2012Q4

REPORT INFORMATION
  Report Type: 
  Country: CA (occurrence: CA)
  Receive Date: 20120914
  Receipt Date: 20120914
  Transmission Date: 20130627
  Serious: Yes (Other)
  Sender: FDA-Public Use
  Company Number: CA-SANOFI-AVENTIS-2012SA065772

PATIENT
  Age: 9 Year
  Sex: Female

DRUGS (3)
  1. ELIGARD [Suspect]
     Indication: IDIOPATHIC SHORT STATURE
     Route: 065
  2. SOMATROPIN [Suspect]
     Indication: IDIOPATHIC SHORT STATURE
     Route: 065
  3. SOMATROPIN [Suspect]
     Indication: IDIOPATHIC SHORT STATURE
     Route: 065

REACTIONS (2)
  - Focal nodular hyperplasia [Unknown]
  - Off label use [Unknown]
